FAERS Safety Report 19081871 (Version 1)
Quarter: 2021Q1

REPORT INFORMATION
  Report Type: Spontaneous
  Country: US (occurrence: US)
  Receive Date: 20210331
  Receipt Date: 20210331
  Transmission Date: 20210420
  Serious: Yes (Other)
  Sender: FDA-Public Use
  Company Number: None

PATIENT
  Age: 34 Year
  Sex: Male

DRUGS (1)
  1. CASIRIVIMAB 1200MG?IMDEVIMAB 1200MG IN 250 [Suspect]
     Active Substance: CASIRIVIMAB\IMDEVIMAB
     Indication: COVID-19
     Dosage: ?          OTHER DOSE:1200/1200/250MG/ML;?
     Route: 042
     Dates: start: 20210324, end: 20210324

REACTIONS (3)
  - Nausea [None]
  - Infusion related reaction [None]
  - Dizziness [None]

NARRATIVE: CASE EVENT DATE: 20210324
